FAERS Safety Report 14291022 (Version 3)
Quarter: 2020Q4

REPORT INFORMATION
  Report Type: Spontaneous
  Country: ES (occurrence: ES)
  Receive Date: 20171215
  Receipt Date: 20201105
  Transmission Date: 20210113
  Serious: Yes (Hospitalization, Other)
  Sender: FDA-Public Use
  Company Number: ES-PFIZER INC-2017535549

PATIENT
  Age: 78 Year
  Sex: Male

DRUGS (4)
  1. MEROPENEM. [Suspect]
     Active Substance: MEROPENEM
     Indication: PYREXIA
     Dosage: 3 G, 1X/DAY
     Route: 042
     Dates: start: 20171002, end: 20171010
  2. ERTAPENEM. [Interacting]
     Active Substance: ERTAPENEM SODIUM
     Indication: URINARY TRACT INFECTION
  3. QUETIAPINA [Interacting]
     Active Substance: QUETIAPINE
     Indication: AGITATION
     Dosage: 25 MG, 1X/DAY
     Route: 048
     Dates: start: 20170928, end: 20171003
  4. ERTAPENEM. [Interacting]
     Active Substance: ERTAPENEM SODIUM
     Indication: PYREXIA
     Dosage: 1 G, 1X/DAY
     Route: 042
     Dates: start: 20170929, end: 20171002

REACTIONS (2)
  - Encephalopathy [Recovered/Resolved]
  - Drug interaction [Unknown]

NARRATIVE: CASE EVENT DATE: 2017
